FAERS Safety Report 8942671 (Version 1)
Quarter: 2012Q4

REPORT INFORMATION
  Report Type: 
  Country: US (occurrence: US)
  Receive Date: 20121204
  Receipt Date: 20121204
  Transmission Date: 20130627
  Serious: Yes (Hospitalization)
  Sender: FDA-Public Use
  Company Number: US-BAYER-2012-125064

PATIENT
  Age: 27 Year
  Sex: Female

DRUGS (17)
  1. YASMIN [Suspect]
  2. YAZ [Suspect]
  3. OCELLA [Suspect]
  4. ZARAH [Suspect]
  5. TRAMADOL [Concomitant]
     Dosage: 50 mg, 6 hours as needed for 7 days
     Route: 048
  6. AZITHROMYCIN [Concomitant]
     Dosage: 250 mg, UNK
     Route: 048
  7. PREDNISONE [Concomitant]
     Dosage: 10 mg, UNK
  8. CELEXA [Concomitant]
     Dosage: 20 mg, UNK
     Route: 048
  9. CLINDESSE [Concomitant]
     Route: 061
  10. LEXAPRO [Concomitant]
     Dosage: 10 mg, UNK
     Route: 048
  11. NEOSPORIN EYE [Concomitant]
     Dosage: 2.5-10000-0.025 mg-unit-mg/mL
     Route: 047
  12. HYDROCODONE W/APAP [Concomitant]
     Dosage: 5/325
  13. OMEPRAZOLE [Concomitant]
     Dosage: 20 mg, UNK
  14. Z-PAK [Concomitant]
  15. LEVAQUIN [Concomitant]
  16. ZOFRAN [Concomitant]
  17. DILAUDID [Concomitant]

REACTIONS (1)
  - Pulmonary embolism [Recovered/Resolved]
